FAERS Safety Report 18530492 (Version 1)
Quarter: 2020Q4

REPORT INFORMATION
  Report Type: Spontaneous
  Country: BE (occurrence: BE)
  Receive Date: 20201121
  Receipt Date: 20201121
  Transmission Date: 20210114
  Serious: Yes (Life-Threatening, Hospitalization, Other)
  Sender: FDA-Public Use
  Company Number: BE-INDICUS PHARMA-000730

PATIENT
  Age: 23 Year
  Sex: Female

DRUGS (1)
  1. METFORMIN [Suspect]
     Active Substance: METFORMIN HYDROCHLORIDE
     Dosage: 64 PILLS OF METFORMIN 850MG (TOTAL INTAKE OF 54 G
     Route: 048

REACTIONS (5)
  - Suicide attempt [Unknown]
  - Hypoglycaemia [Recovered/Resolved]
  - Shock [Recovered/Resolved]
  - Intentional overdose [Unknown]
  - Lactic acidosis [Recovered/Resolved]
